FAERS Safety Report 25704567 (Version 1)
Quarter: 2025Q3

REPORT INFORMATION
  Report Type: Spontaneous
  Country: US (occurrence: US)
  Receive Date: 20250820
  Receipt Date: 20250820
  Transmission Date: 20251021
  Serious: No
  Sender: BRISTOL-MYERS SQUIBB COMPANY
  Company Number: US-BRISTOL-MYERS SQUIBB COMPANY-2025-115497

PATIENT
  Sex: Male

DRUGS (2)
  1. ORENCIA [Suspect]
     Active Substance: ABATACEPT
     Indication: Rheumatoid arthritis
     Dosage: 250MG VIALS (3 VIALS)
     Route: 042
     Dates: start: 2023
  2. ORENCIA [Suspect]
     Active Substance: ABATACEPT
     Dosage: 250MG VIAL
     Route: 042
     Dates: start: 2023

REACTIONS (3)
  - Product distribution issue [Unknown]
  - Product temperature excursion issue [Unknown]
  - Therapy interrupted [Unknown]

NARRATIVE: CASE EVENT DATE: 20250813
